FAERS Safety Report 24545339 (Version 1)
Quarter: 2024Q4

REPORT INFORMATION
  Report Type: Spontaneous
  Country: BR (occurrence: BR)
  Receive Date: 20241024
  Receipt Date: 20241024
  Transmission Date: 20250115
  Serious: Yes (Other)
  Sender: VERTEX
  Company Number: BR-VERTEX PHARMACEUTICALS-2024-016538

PATIENT
  Sex: Female

DRUGS (6)
  1. TRIKAFTA [Suspect]
     Active Substance: ELEXACAFTOR\IVACAFTOR\TEZACAFTOR
     Indication: Cystic fibrosis
     Dosage: 200 MG ELEXA/100MG TEZA/ 150MG IVA, 150MG IVA
     Route: 048
     Dates: start: 202406
  2. AZITHROMYCIN [Concomitant]
     Active Substance: AZITHROMYCIN
     Dosage: UNK
     Dates: end: 20240919
  3. SERETIDE [Concomitant]
     Active Substance: FLUTICASONE PROPIONATE\SALMETEROL XINAFOATE
  4. DORNASE ALFA [Concomitant]
     Active Substance: DORNASE ALFA
  5. PERT [Concomitant]
  6. OMEPRAZOLE [Concomitant]
     Active Substance: OMEPRAZOLE

REACTIONS (2)
  - Abortion spontaneous [Unknown]
  - Exposure during pregnancy [Unknown]
